FAERS Safety Report 4713350-6 (Version None)
Quarter: 2005Q3

REPORT INFORMATION
  Report Type: 
  Country: None (occurrence: None)
  Receive Date: 20050713
  Receipt Date: 20050509
  Transmission Date: 20060218
  Serious: No
  Sender: FDA-Public Use
  Company Number: 2005UW07280

PATIENT
  Age: 35 Year
  Sex: Male
  Weight: 105.9 kg

DRUGS (3)
  1. CRESTOR [Suspect]
     Indication: HYPERCHOLESTEROLAEMIA
     Route: 048
     Dates: start: 20040402, end: 20040511
  2. BRICANYL [Concomitant]
     Route: 055
     Dates: start: 20031215
  3. SYMBICORT TURBUHALER [Concomitant]
     Route: 055
     Dates: start: 20031106

REACTIONS (3)
  - ASPARTATE AMINOTRANSFERASE INCREASED [None]
  - BLOOD CREATINE PHOSPHOKINASE INCREASED [None]
  - MUSCLE SPASMS [None]
